FAERS Safety Report 17274388 (Version 2)
Quarter: 2020Q1

REPORT INFORMATION
  Report Type: Spontaneous
  Country: DE (occurrence: DE)
  Receive Date: 20200115
  Receipt Date: 20200224
  Transmission Date: 20200409
  Serious: No
  Sender: FDA-Public Use
  Company Number: DE-TOLMAR, INC.-19DE001318

PATIENT
  Sex: Male

DRUGS (1)
  1. ELIGARD [Suspect]
     Active Substance: LEUPROLIDE ACETATE
     Indication: PROSTATE CANCER
     Dosage: 22.5 MG, Q 3 MONTH
     Route: 065

REACTIONS (5)
  - Device leakage [None]
  - Syringe issue [None]
  - Product packaging quantity issue [None]
  - Intercepted product preparation error [None]
  - Wrong technique in product usage process [None]

NARRATIVE: CASE EVENT DATE: 20191121
